FAERS Safety Report 22307301 (Version 1)
Quarter: 2023Q2

REPORT INFORMATION
  Report Type: Spontaneous
  Country: US (occurrence: US)
  Receive Date: 20230511
  Receipt Date: 20230511
  Transmission Date: 20230722
  Serious: No
  Sender: FDA-Public Use
  Company Number: US-Amarin Pharma, Inc.-2022AMR001343

PATIENT

DRUGS (3)
  1. VASCEPA [Suspect]
     Active Substance: ICOSAPENT ETHYL
     Indication: Product used for unknown indication
     Dates: start: 20221118, end: 20221121
  2. KRYSTEXXA [Concomitant]
     Active Substance: PEGLOTICASE
     Indication: Product used for unknown indication
     Dates: start: 20220718, end: 202211
  3. COLCHICINE [Concomitant]
     Active Substance: COLCHICINE
     Indication: Arthralgia
     Dosage: EVERY OTHER DAY

REACTIONS (3)
  - Gout [Not Recovered/Not Resolved]
  - Nausea [Not Recovered/Not Resolved]
  - Drug hypersensitivity [Not Recovered/Not Resolved]

NARRATIVE: CASE EVENT DATE: 20221118
